FAERS Safety Report 11722548 (Version 6)
Quarter: 2016Q3

REPORT INFORMATION
  Report Type: Report from Study
  Country: CA (occurrence: CA)
  Receive Date: 20151111
  Receipt Date: 20160803
  Transmission Date: 20161109
  Serious: Yes (Life-Threatening)
  Sender: FDA-Public Use
  Company Number: PHHY2015CA131821

PATIENT
  Sex: Female

DRUGS (3)
  1. MEKINIST [Suspect]
     Active Substance: TRAMETINIB DIMETHYL SULFOXIDE
     Indication: METASTATIC MALIGNANT MELANOMA
     Dosage: 02 MG, QD (DAILY)
     Route: 048
     Dates: start: 20151127
  2. TAFINLAR [Suspect]
     Active Substance: DABRAFENIB MESYLATE
     Indication: METASTATIC MALIGNANT MELANOMA
     Dosage: 300 MG, QD
     Route: 048
     Dates: start: 20150929
  3. MEKINIST [Suspect]
     Active Substance: TRAMETINIB DIMETHYL SULFOXIDE
     Dosage: 4 MG, QD
     Route: 048

REACTIONS (21)
  - Gait disturbance [Unknown]
  - Bowel movement irregularity [Unknown]
  - Acne [Unknown]
  - Vomiting [Not Recovered/Not Resolved]
  - Skin disorder [Unknown]
  - Skin hypertrophy [Unknown]
  - Diarrhoea [Unknown]
  - Nausea [Not Recovered/Not Resolved]
  - Sensory disturbance [Unknown]
  - Hyperaesthesia [Unknown]
  - Asthenia [Unknown]
  - Productive cough [Unknown]
  - Acrochordon [Unknown]
  - Skin lesion [Unknown]
  - Nasopharyngitis [Unknown]
  - Feeling abnormal [Unknown]
  - Dizziness [Unknown]
  - Cough [Unknown]
  - Peripheral swelling [Recovered/Resolved]
  - Rash [Unknown]
  - Incorrect dose administered [Unknown]
